FAERS Safety Report 14961492 (Version 1)
Quarter: 2018Q2

REPORT INFORMATION
  Report Type: Report from Study
  Country: US (occurrence: US)
  Receive Date: 20180601
  Receipt Date: 20180601
  Transmission Date: 20180711
  Serious: Yes (Hospitalization)
  Sender: FDA-Public Use
  Company Number: US-BAXTER-2018BAX009708

PATIENT
  Age: 19 Year
  Sex: Male
  Weight: 108.4 kg

DRUGS (29)
  1. INCB018424 [Suspect]
     Active Substance: RUXOLITINIB
     Dosage: ON DAY 1-28, LAST DOSE, PRIOR TO THE SAE OF DELAYED MTX (METHOTREXATE) CLEARANCE
     Route: 048
     Dates: start: 20180322
  2. MERCAPTOPURINE. [Suspect]
     Active Substance: MERCAPTOPURINE
     Dosage: TABLET, STARTING ON DAY 1, LAST DOSE PRIOR TO THE SAE OF DELAYED MTX CLEARANCE
     Route: 065
     Dates: start: 20180320, end: 20180320
  3. METHOTREXATE. [Suspect]
     Active Substance: METHOTREXATE
     Dosage: ON DAY 1
     Route: 042
     Dates: start: 20171219, end: 20171219
  4. VINCRISTINE [Suspect]
     Active Substance: VINCRISTINE
     Indication: ACUTE LYMPHOCYTIC LEUKAEMIA
     Dosage: FIRST DOSE ON DAY 15
     Route: 042
     Dates: start: 20180103, end: 20180103
  5. INCB018424 [Suspect]
     Active Substance: RUXOLITINIB
     Dosage: LAST DOSE PRIOR TO THE SAE OF FEBRILE NEUTROPENIA (FIRST OCCURRENCE)
     Route: 048
     Dates: start: 20180109, end: 20180109
  6. INCB018424 [Suspect]
     Active Substance: RUXOLITINIB
     Dosage: LAST DOSE PRIOR TO THE SAE OF FEBRILE NEUTROPENIA (SECOND OCCURRENCE)
     Route: 048
     Dates: start: 20180222, end: 20180222
  7. INCB018424 [Suspect]
     Active Substance: RUXOLITINIB
     Dosage: DOSE RE-INTRODUCED
     Route: 048
     Dates: start: 20180223
  8. CYTARABINE. [Suspect]
     Active Substance: CYTARABINE
     Dosage: DAYS 1-4,8-11,29-32, 36-39, LAST DOSE PRIOR TO THE FEBRILE NEUTROPENIA (SECOND OCCURRENCE)
     Route: 065
     Dates: start: 20180208, end: 20180208
  9. LEUCOVORIN. [Suspect]
     Active Substance: LEUCOVORIN
     Route: 042
     Dates: start: 201803
  10. RIVAROXABAN [Concomitant]
     Active Substance: RIVAROXABAN
     Indication: PRODUCT USED FOR UNKNOWN INDICATION
     Route: 065
     Dates: start: 20171201
  11. INCB018424 [Suspect]
     Active Substance: RUXOLITINIB
     Indication: ACUTE LYMPHOCYTIC LEUKAEMIA
     Dosage: FIRST DOSE
     Route: 048
     Dates: start: 20171219
  12. METHOTREXATE. [Suspect]
     Active Substance: METHOTREXATE
     Indication: ACUTE LYMPHOCYTIC LEUKAEMIA
     Dosage: DAYS 1, 8, 15, 22
     Route: 037
     Dates: start: 20171219, end: 20171219
  13. METHOTREXATE. [Suspect]
     Active Substance: METHOTREXATE
     Dosage: LAST DOSE PRIOR TO THE FEBRILE NEUTROPENIA (FIRST AND SECOND OCCURRENCE)
     Route: 037
     Dates: start: 20180109, end: 20180109
  14. METHOTREXATE. [Suspect]
     Active Substance: METHOTREXATE
     Dosage: ON DAY 1
     Route: 042
     Dates: start: 20180320, end: 20180320
  15. VINCRISTINE [Suspect]
     Active Substance: VINCRISTINE
     Dosage: LAST DOSE PRIOR TO THE SAE OF DELAYED MTX CLEARANCE, ON DAY 15.
     Route: 065
     Dates: start: 20180320, end: 20180320
  16. LEUCOVORIN. [Suspect]
     Active Substance: LEUCOVORIN
     Indication: ACUTE LYMPHOCYTIC LEUKAEMIA
     Dosage: Q3 HOURS, LAST DOSE PRIOR TO THE SAE OF DELAYED MTX CLEARANCE
     Route: 065
     Dates: start: 20180320
  17. CYCLOPHOSPHAMIDE FOR INJECTION, USP [Suspect]
     Active Substance: CYCLOPHOSPHAMIDE
     Indication: ACUTE LYMPHOCYTIC LEUKAEMIA
     Dosage: 1000 MG/M2, FIRST AND LAST DOSE PRIOR TO THE SAE OF FEBRILE NEUTROPENIA (FIRST AND SECOND OCCURRENCE
     Route: 042
     Dates: start: 20171219, end: 20171219
  18. MERCAPTOPURINE. [Suspect]
     Active Substance: MERCAPTOPURINE
     Dosage: LAST DOSE PRIOR TO THE SAE OF FEBRILE NEUTROPENIA (FIRST OCCURRENCE)
     Route: 065
     Dates: start: 20171229, end: 20171229
  19. METHOTREXATE. [Suspect]
     Active Substance: METHOTREXATE
     Dosage: ON DAY 1, LAST DOSE PRIOR TO THE SAE OF DELAYED MTX CLEARANCE
     Route: 037
     Dates: start: 20180320, end: 20180320
  20. PEGASPARGASE [Suspect]
     Active Substance: PEGASPARGASE
     Indication: ACUTE LYMPHOCYTIC LEUKAEMIA
     Dosage: DOSE 1500 IU/M2 ON DAY 15 AND LAST DOSE PRIOR TO THE FEBRILE NEUTROPENIA (FIRST OCCURRENCE)
     Route: 065
     Dates: start: 20180103, end: 20180103
  21. PEGASPARGASE [Suspect]
     Active Substance: PEGASPARGASE
     Dosage: DOSE 2500 IU/M2 ON DAY 43 AND LAST DOSE PRIOR TO THE FEBRILE NEUTROPENIA (SECOND OCCURRENCE)
     Route: 065
     Dates: start: 20180212, end: 20180212
  22. LEUCOVORIN. [Suspect]
     Active Substance: LEUCOVORIN
     Dosage: DOSE FREQUENCY INCREASED
     Route: 042
     Dates: start: 20180322, end: 20180403
  23. CYTARABINE. [Suspect]
     Active Substance: CYTARABINE
     Indication: ACUTE LYMPHOCYTIC LEUKAEMIA
     Dosage: DAYS 1-4, 8-11, 29-32 AND 36-39
     Route: 065
     Dates: start: 20171219
  24. VINCRISTINE [Suspect]
     Active Substance: VINCRISTINE
     Dosage: LAST DOSE PRIOR TO THE SAE OF FEBRILE NEUTROPENIA (FIRST OCCURRENCE)
     Route: 042
     Dates: start: 20180109, end: 20180109
  25. INCB018424 [Suspect]
     Active Substance: RUXOLITINIB
     Dosage: ON DAYS 1-28, TABLET
     Route: 065
     Dates: start: 20180320
  26. CYTARABINE. [Suspect]
     Active Substance: CYTARABINE
     Dosage: LAST DOSE PRIOR TO THE SAE OF FEBRILE NEUTROPENIA (FIRST OCCURRENCE)
     Route: 065
     Dates: start: 20171229, end: 20171229
  27. VINCRISTINE [Suspect]
     Active Substance: VINCRISTINE
     Dosage: LAST DOSE PRIOR TO THE FEBRILE NEUTROPENIA (SECOND OCCURRENCE)
     Route: 042
     Dates: start: 20180220, end: 20180220
  28. MERCAPTOPURINE. [Suspect]
     Active Substance: MERCAPTOPURINE
     Indication: ACUTE LYMPHOCYTIC LEUKAEMIA
     Dosage: DAYS 1-14 AND 29-42
     Route: 065
     Dates: start: 20171219
  29. MERCAPTOPURINE. [Suspect]
     Active Substance: MERCAPTOPURINE
     Dosage: LAST DOSE PRIOR TO THE SAE OF FEBRILE NEUTROPENIA (SECOND OCCURRENCE)
     Route: 065
     Dates: start: 20180211, end: 20180211

REACTIONS (4)
  - Chemotherapeutic drug level increased [Recovered/Resolved]
  - Febrile neutropenia [Recovered/Resolved]
  - Escherichia infection [Recovered/Resolved]
  - Febrile neutropenia [Recovered/Resolved]

NARRATIVE: CASE EVENT DATE: 20180113
